FAERS Safety Report 16772070 (Version 1)
Quarter: 2019Q3

REPORT INFORMATION
  Report Type: Spontaneous
  Country: US (occurrence: US)
  Receive Date: 20190904
  Receipt Date: 20190904
  Transmission Date: 20191005
  Serious: No
  Sender: FDA-Public Use
  Company Number: US-SHIRE-US201928737

PATIENT
  Sex: Female

DRUGS (6)
  1. ACEBUTOLOL [Concomitant]
     Active Substance: ACEBUTOLOL
     Indication: POSTURAL ORTHOSTATIC TACHYCARDIA SYNDROME
  2. OXYCODONE [Concomitant]
     Active Substance: OXYCODONE
     Indication: PAIN
  3. VYVANSE [Suspect]
     Active Substance: LISDEXAMFETAMINE DIMESYLATE
     Indication: ATTENTION DEFICIT/HYPERACTIVITY DISORDER
     Dosage: 30 MILLIGRAM, 1X/DAY:QD
     Route: 048
  4. AMBIEN [Concomitant]
     Active Substance: ZOLPIDEM TARTRATE
     Indication: INSOMNIA
  5. VYVANSE [Suspect]
     Active Substance: LISDEXAMFETAMINE DIMESYLATE
     Dosage: 20 MILLIGRAM, 1X/DAY:QD
     Route: 048
  6. VYVANSE [Suspect]
     Active Substance: LISDEXAMFETAMINE DIMESYLATE
     Dosage: 10 MILLIGRAM, 1X/DAY:QD
     Route: 048

REACTIONS (3)
  - Off label use [Not Recovered/Not Resolved]
  - Migraine [Not Recovered/Not Resolved]
  - Adverse event [Unknown]
